FAERS Safety Report 8509788 (Version 3)
Quarter: 2012Q4

REPORT INFORMATION
  Report Type: 
  Country: US (occurrence: US)
  Receive Date: 20120413
  Receipt Date: 20120903
  Transmission Date: 20130627
  Serious: Yes (Hospitalization)
  Sender: FDA-Public Use
  Company Number: US-BAYER-2012-032937

PATIENT
  Age: 35 Year
  Sex: Female
  Weight: 71.66 kg

DRUGS (5)
  1. YAZ [Suspect]
     Indication: CONTRACEPTION
     Dosage: UNK
     Route: 048
     Dates: start: 2005, end: 2009
  2. YASMIN [Suspect]
     Indication: CONTRACEPTION
     Dosage: UNK
     Route: 048
     Dates: start: 2005, end: 2009
  3. DIETARY SUPPLEMENTS [Concomitant]
     Dosage: UNK
     Dates: start: 200906
  4. ASPIRIN [Concomitant]
  5. VICODIN [Concomitant]
     Indication: ARTHRALGIA

REACTIONS (3)
  - Pulmonary embolism [Recovered/Resolved]
  - Deep vein thrombosis [None]
  - Injury [None]
